FAERS Safety Report 6268542-4 (Version None)
Quarter: 2009Q3

REPORT INFORMATION
  Report Type: 
  Country: None (occurrence: None)
  Receive Date: 20090715
  Receipt Date: 20090710
  Transmission Date: 20100115
  Serious: Yes (Life-Threatening)
  Sender: FDA-Public Use
  Company Number: FR-BRISTOL-MYERS SQUIBB COMPANY-14697874

PATIENT
  Age: 46 Year
  Sex: Female
  Weight: 66 kg

DRUGS (4)
  1. IXABEPILONE [Suspect]
     Indication: BREAST CANCER
     Route: 042
     Dates: start: 20090216, end: 20090216
  2. ENDOXAN [Suspect]
     Indication: BREAST CANCER
     Dosage: INITIAL DOSE TAKEN ON 15DEC08. TOTAL DOSE=2640MG.
     Route: 042
     Dates: start: 20090126, end: 20090126
  3. FLUOROURACIL [Suspect]
     Indication: BREAST CANCER
     Dosage: TOTAL DOSE=2640MG. INITIAL DOSE TAKEN ON 15DEC08.
     Route: 042
     Dates: start: 20090126, end: 20090126
  4. EPIRUBICIN [Suspect]
     Indication: BREAST CANCER
     Dosage: INITIAL DOSE TAKEN ON 15DEC08. TOTAL DOSE 540MG
     Route: 042
     Dates: start: 20090126, end: 20090126

REACTIONS (1)
  - MYALGIA [None]
